FAERS Safety Report 7705762-3 (Version None)
Quarter: 2011Q3

REPORT INFORMATION
  Report Type: 
  Country: None (occurrence: None)
  Receive Date: 20110824
  Receipt Date: 20110824
  Transmission Date: 20111222
  Serious: No
  Sender: FDA-Public Use
  Company Number: None

PATIENT
  Sex: Female

DRUGS (1)
  1. NUTROPIN AQ [Suspect]
     Indication: DWARFISM
     Dosage: 0.8MG
     Route: 058
     Dates: start: 20100410, end: 20110713

REACTIONS (2)
  - DRUG INEFFECTIVE [None]
  - ARTHRITIS [None]
